FAERS Safety Report 11296387 (Version 1)
Quarter: 2015Q3

REPORT INFORMATION
  Report Type: Spontaneous
  Country: US (occurrence: US)
  Receive Date: 20150722
  Receipt Date: 20150722
  Transmission Date: 20151125
  Serious: No
  Sender: FDA-Public Use
  Company Number: US-ELI_LILLY_AND_COMPANY-US201001004814

PATIENT
  Age: 45 Year
  Sex: Male

DRUGS (4)
  1. EFFIENT [Suspect]
     Active Substance: PRASUGREL HYDROCHLORIDE
     Dosage: 10 MG, UNK
     Dates: start: 20100119
  2. HEPARIN [Concomitant]
     Active Substance: HEPARIN SODIUM
  3. EFFIENT [Suspect]
     Active Substance: PRASUGREL HYDROCHLORIDE
     Dosage: 40 MG, UNK
     Dates: start: 20100118
  4. EFFIENT [Suspect]
     Active Substance: PRASUGREL HYDROCHLORIDE
     Dosage: 20 MG, UNK
     Dates: start: 20100118

REACTIONS (1)
  - Platelet function test abnormal [Recovered/Resolved]

NARRATIVE: CASE EVENT DATE: 20100120
